FAERS Safety Report 18653322 (Version 1)
Quarter: 2020Q4

REPORT INFORMATION
  Report Type: Spontaneous
  Country: CA (occurrence: CA)
  Receive Date: 20201223
  Receipt Date: 20201223
  Transmission Date: 20210114
  Serious: Yes (Life-Threatening, Hospitalization)
  Sender: FDA-Public Use
  Company Number: CA-SA-2020SA365364

PATIENT

DRUGS (1)
  1. ALEMTUZUMAB [Suspect]
     Active Substance: ALEMTUZUMAB
     Indication: LUNG TRANSPLANT REJECTION
     Dosage: 15 MG
     Route: 040

REACTIONS (3)
  - Dyspnoea [Unknown]
  - Hypoxia [Unknown]
  - Nausea [Unknown]
